FAERS Safety Report 5604025-X (Version None)
Quarter: 2008Q1

REPORT INFORMATION
  Report Type: 
  Country: None (occurrence: None)
  Receive Date: 20080128
  Receipt Date: 20080118
  Transmission Date: 20080703
  Serious: Yes (Other)
  Sender: FDA-Public Use
  Company Number: PT-BRISTOL-MYERS SQUIBB COMPANY-14013197

PATIENT
  Age: 71 Year
  Sex: Male

DRUGS (3)
  1. MITOMYCIN [Suspect]
     Route: 043
     Dates: end: 20071108
  2. MICARDIS HCT [Concomitant]
     Route: 048
  3. GLUCOVANCE [Concomitant]
     Route: 048

REACTIONS (6)
  - BLOOD PRESSURE INCREASED [None]
  - ERYTHEMA [None]
  - FEELING HOT [None]
  - MALAISE [None]
  - NASAL CONGESTION [None]
  - NAUSEA [None]
